FAERS Safety Report 8395357-3 (Version None)
Quarter: 2012Q1

REPORT INFORMATION
  Report Type: 
  Country: None (occurrence: None)
  Receive Date: 20120323
  Receipt Date: 20110328
  Transmission Date: 20120608
  Serious: Yes (Hospitalization, Other)
  Sender: FDA-Public Use
  Company Number: 163-21880-11033480

PATIENT
  Age: 59 Year
  Sex: Male
  Weight: 91.173 kg

DRUGS (1)
  1. REVLIMID [Suspect]
     Indication: MULTIPLE MYELOMA
     Dosage: 25 MG, DAILY FOR 21 DAYS, PO
     Route: 048
     Dates: start: 20101202

REACTIONS (2)
  - INFLUENZA LIKE ILLNESS [None]
  - ATRIAL FIBRILLATION [None]
